FAERS Safety Report 17584269 (Version 1)
Quarter: 2020Q1

REPORT INFORMATION
  Report Type: Spontaneous
  Country: US (occurrence: US)
  Receive Date: 20200326
  Receipt Date: 20200326
  Transmission Date: 20200409
  Serious: Yes (Other)
  Sender: FDA-Public Use
  Company Number: US-ROCHE-2570332

PATIENT

DRUGS (16)
  1. PEGAPTANIB [Suspect]
     Active Substance: PEGAPTANIB
     Indication: DIABETIC RETINOPATHY
  2. RANIBIZUMAB. [Suspect]
     Active Substance: RANIBIZUMAB
     Indication: DIABETIC RETINAL OEDEMA
  3. BEVACIZUMAB. [Suspect]
     Active Substance: BEVACIZUMAB
     Indication: DIABETIC RETINAL OEDEMA
  4. RANIBIZUMAB. [Suspect]
     Active Substance: RANIBIZUMAB
     Indication: RETINAL VEIN OCCLUSION
  5. AFLIBERCEPT [Suspect]
     Active Substance: AFLIBERCEPT
     Indication: AGE-RELATED MACULAR DEGENERATION
     Dosage: UNK
     Route: 050
  6. AFLIBERCEPT [Suspect]
     Active Substance: AFLIBERCEPT
     Indication: RETINAL VEIN OCCLUSION
  7. RANIBIZUMAB. [Suspect]
     Active Substance: RANIBIZUMAB
     Indication: AGE-RELATED MACULAR DEGENERATION
     Dosage: UNK, SOLUTION FOR  INJECTION
     Route: 065
  8. PEGAPTANIB [Suspect]
     Active Substance: PEGAPTANIB
     Indication: DIABETIC RETINAL OEDEMA
  9. BEVACIZUMAB. [Suspect]
     Active Substance: BEVACIZUMAB
     Indication: AGE-RELATED MACULAR DEGENERATION
     Dosage: SOLUTION FOR INFUSION
     Route: 065
  10. PEGAPTANIB [Suspect]
     Active Substance: PEGAPTANIB
     Indication: AGE-RELATED MACULAR DEGENERATION
     Dosage: UNK
     Route: 050
  11. AFLIBERCEPT [Suspect]
     Active Substance: AFLIBERCEPT
     Indication: DIABETIC RETINOPATHY
  12. RANIBIZUMAB. [Suspect]
     Active Substance: RANIBIZUMAB
     Indication: DIABETIC RETINOPATHY
  13. BEVACIZUMAB. [Suspect]
     Active Substance: BEVACIZUMAB
     Indication: DIABETIC RETINOPATHY
  14. BEVACIZUMAB. [Suspect]
     Active Substance: BEVACIZUMAB
     Indication: RETINAL VEIN OCCLUSION
  15. AFLIBERCEPT [Suspect]
     Active Substance: AFLIBERCEPT
     Indication: DIABETIC RETINAL OEDEMA
  16. PEGAPTANIB [Suspect]
     Active Substance: PEGAPTANIB
     Indication: RETINAL VEIN OCCLUSION

REACTIONS (3)
  - Haemorrhagic stroke [Unknown]
  - Ischaemic stroke [Unknown]
  - Embolic stroke [Unknown]
